FAERS Safety Report 15396177 (Version 1)
Quarter: 2018Q3

REPORT INFORMATION
  Report Type: Spontaneous
  Country: US (occurrence: US)
  Receive Date: 20180912
  Receipt Date: 20180912
  Transmission Date: 20181010
  Serious: Yes (Other)
  Sender: FDA-Public Use
  Company Number: None

PATIENT
  Age: 79 Year
  Sex: Female
  Weight: 81 kg

DRUGS (7)
  1. MULTI VITAMIN CENTRUM SILVER [Concomitant]
  2. LEXAPRO GENERIC [Concomitant]
     Active Substance: ESCITALOPRAM OXALATE
  3. SYNTHROID [Concomitant]
     Active Substance: LEVOTHYROXINE SODIUM
  4. LOSARTN POTASSIUM [Concomitant]
  5. ROSUVASTATIN CALCIUM 5MG [Suspect]
     Active Substance: ROSUVASTATIN CALCIUM
     Indication: BLOOD CHOLESTEROL INCREASED
     Dosage: ?          QUANTITY:1 TABLET(S);?
     Route: 048
  6. AERDS 2 [Concomitant]
  7. PRAVASTATIN. [Concomitant]
     Active Substance: PRAVASTATIN

REACTIONS (9)
  - Product substitution issue [None]
  - Constipation [None]
  - Dyspepsia [None]
  - Musculoskeletal chest pain [None]
  - Abdominal discomfort [None]
  - Nausea [None]
  - Myocardial infarction [None]
  - Gastrointestinal pain [None]
  - Middle insomnia [None]

NARRATIVE: CASE EVENT DATE: 20180813
